FAERS Safety Report 4283526-3 (Version None)
Quarter: 2004Q1

REPORT INFORMATION
  Report Type: 
  Country: None (occurrence: None)
  Receive Date: 20040120
  Receipt Date: 20030528
  Transmission Date: 20041129
  Serious: Yes (Other)
  Sender: FDA-Public Use
  Company Number: NSADSS2003024808

PATIENT
  Age: 26 Year
  Sex: Female
  Weight: 68.0396 kg

DRUGS (3)
  1. PARAGARD T380A (INTRAUTERINE CONTRACEPTIVE DEVICE) [Suspect]
     Indication: INTRA-UTERINE CONTRACEPTIVE DEVICE INSERTION
     Dosage: INTRAUTERINE
     Route: 015
     Dates: start: 20020101, end: 20030527
  2. DIFLUCAN () FULCONAZOLE [Concomitant]
  3. METROGEL [Concomitant]

REACTIONS (6)
  - ABDOMINAL PAIN [None]
  - ABORTION THREATENED [None]
  - BREAST PAIN [None]
  - DRUG EXPOSURE DURING PREGNANCY [None]
  - UNINTENDED PREGNANCY [None]
  - VAGINITIS [None]
